FAERS Safety Report 15730995 (Version 2)
Quarter: 2018Q4

REPORT INFORMATION
  Report Type: Report from Study
  Country: BR (occurrence: BR)
  Receive Date: 20181217
  Receipt Date: 20181220
  Transmission Date: 20190205
  Serious: Yes (Death)
  Sender: FDA-Public Use
  Company Number: PHHY2018BR187971

PATIENT
  Sex: Female
  Weight: 46 kg

DRUGS (3)
  1. ACLASTA [Suspect]
     Active Substance: ZOLEDRONIC ACID
     Indication: OSTEOPOROSIS
  2. ESOMEPRAZOLE. [Concomitant]
     Active Substance: ESOMEPRAZOLE MAGNESIUM
     Indication: GASTRECTOMY
     Dosage: 40 MG, QD
     Route: 048
  3. ACLASTA [Suspect]
     Active Substance: ZOLEDRONIC ACID
     Indication: PSORIATIC ARTHROPATHY
     Dosage: 1 DF, Q12MO
     Route: 042
     Dates: start: 20180123

REACTIONS (2)
  - Gastric neoplasm [Fatal]
  - Infection [Fatal]
